FAERS Safety Report 22968199 (Version 2)
Quarter: 2023Q4

REPORT INFORMATION
  Report Type: Spontaneous
  Country: US (occurrence: US)
  Receive Date: 20230921
  Receipt Date: 20231027
  Transmission Date: 20240110
  Serious: No
  Sender: FDA-Public Use
  Company Number: US-JNJFOC-20230939781

PATIENT
  Age: 25 Year
  Sex: Male
  Weight: 87.7 kg

DRUGS (3)
  1. REMICADE [Suspect]
     Active Substance: INFLIXIMAB
     Indication: Colitis ulcerative
     Dosage: WEEK 0
     Route: 041
     Dates: start: 20230801
  2. REMICADE [Suspect]
     Active Substance: INFLIXIMAB
     Dosage: WEEK 2
     Route: 041
     Dates: start: 20230817
  3. REMICADE [Suspect]
     Active Substance: INFLIXIMAB
     Dosage: WEEK 6
     Route: 041
     Dates: start: 20230918

REACTIONS (1)
  - Wrong technique in product usage process [Unknown]

NARRATIVE: CASE EVENT DATE: 20230918
